FAERS Safety Report 6964556-7 (Version None)
Quarter: 2010Q3

REPORT INFORMATION
  Report Type: 
  Country: None (occurrence: None)
  Receive Date: 20100903
  Receipt Date: 20100809
  Transmission Date: 20110219
  Serious: Yes (Hospitalization)
  Sender: FDA-Public Use
  Company Number: US-BAYER-201011620NA

PATIENT
  Age: 39 Year
  Sex: Female
  Weight: 67 kg

DRUGS (10)
  1. YASMIN [Suspect]
     Indication: ACNE
     Route: 048
     Dates: start: 20050301, end: 20071101
  2. YASMIN [Suspect]
     Route: 048
     Dates: start: 20090601, end: 20090801
  3. MOTRIM [Concomitant]
  4. ASCORBIC ACID [Concomitant]
  5. ANTIBIOTICS [Concomitant]
  6. XANAX [Concomitant]
  7. CLOBETASOL PROPRIONATE FOAM [Concomitant]
  8. LOPROX [Concomitant]
     Indication: UNEVALUABLE EVENT
     Route: 065
     Dates: start: 20060101
  9. ALAVERT [Concomitant]
     Indication: MULTIPLE ALLERGIES
     Route: 065
     Dates: start: 20060601
  10. BENZOIL PEROXIDE [Concomitant]
     Indication: ACNE
     Route: 065
     Dates: start: 20080101

REACTIONS (2)
  - DEEP VEIN THROMBOSIS [None]
  - PULMONARY EMBOLISM [None]
